FAERS Safety Report 7576411-2 (Version None)
Quarter: 2011Q2

REPORT INFORMATION
  Report Type: 
  Country: None (occurrence: None)
  Receive Date: 20110628
  Receipt Date: 20110610
  Transmission Date: 20111010
  Serious: Yes (Other)
  Sender: FDA-Public Use
  Company Number: US-BAYER-2011-050880

PATIENT
  Age: 32 Year
  Sex: Female

DRUGS (1)
  1. MIRENA [Suspect]
     Indication: PRODUCT USED FOR UNKNOWN INDICATION
     Dosage: 20 MCG/24HR, CONT
     Route: 015
     Dates: start: 20101101, end: 20110606

REACTIONS (8)
  - ERYTHEMA [None]
  - ARTHRALGIA [None]
  - HYPERSENSITIVITY [None]
  - RASH GENERALISED [None]
  - PARAESTHESIA [None]
  - PRURITUS [None]
  - MENSTRUATION DELAYED [None]
  - OEDEMA PERIPHERAL [None]
